FAERS Safety Report 9804981 (Version 4)
Quarter: 2014Q1

REPORT INFORMATION
  Report Type: Spontaneous
  Country: US (occurrence: US)
  Receive Date: 20140109
  Receipt Date: 20140204
  Transmission Date: 20141002
  Serious: Yes (Hospitalization, Other)
  Sender: FDA-Public Use
  Company Number: US-PFIZER INC-2014002489

PATIENT
  Age: 60 Year
  Sex: Female
  Weight: 83.9 kg

DRUGS (5)
  1. ALPRAZOLAM [Suspect]
     Indication: ANXIETY
     Dosage: 6 MG, AS NEEDED
     Route: 048
     Dates: start: 1988, end: 2013
  2. ALPRAZOLAM [Suspect]
     Indication: DEPRESSION
     Dosage: UNK, AS NEEDED
     Route: 048
     Dates: end: 2013
  3. PROZAC [Concomitant]
     Dosage: UNK
  4. EFFEXOR [Concomitant]
     Dosage: UNK
  5. SYNTHROID [Concomitant]
     Indication: AUTOIMMUNE THYROIDITIS
     Dosage: UNK

REACTIONS (11)
  - Malaise [Unknown]
  - Drug dependence [Unknown]
  - Paranoia [Unknown]
  - Anxiety [Unknown]
  - Electrocardiogram T wave abnormal [Unknown]
  - Drug withdrawal syndrome [Unknown]
  - Mental disorder [Unknown]
  - Feeling abnormal [Unknown]
  - Drug ineffective [Unknown]
  - Blood pressure increased [Unknown]
  - Memory impairment [Unknown]
